FAERS Safety Report 6254590-7 (Version None)
Quarter: 2009Q3

REPORT INFORMATION
  Report Type: 
  Country: None (occurrence: None)
  Receive Date: 20090702
  Receipt Date: 20090626
  Transmission Date: 20100115
  Serious: Yes (Death, Life-Threatening, Disabling)
  Sender: FDA-Public Use
  Company Number: A0793983A

PATIENT
  Age: 18 Year
  Sex: Male

DRUGS (2)
  1. LAMOTRIGINE [Suspect]
     Indication: EPILEPSY
     Route: 048
  2. KEPPRA [Suspect]
     Route: 048
     Dates: start: 20090501

REACTIONS (3)
  - CARDIOVASCULAR DISORDER [None]
  - CONVULSION [None]
  - DEATH [None]
